FAERS Safety Report 20448196 (Version 1)
Quarter: 2022Q1

REPORT INFORMATION
  Report Type: Spontaneous
  Country: US (occurrence: US)
  Receive Date: 20220209
  Receipt Date: 20220209
  Transmission Date: 20220423
  Serious: Yes (Other)
  Sender: FDA-Public Use
  Company Number: US-SANOFI-00956972

PATIENT
  Age: 56 Year
  Sex: Female

DRUGS (1)
  1. LANTUS SOLOSTAR [Suspect]
     Active Substance: INSULIN GLARGINE
     Indication: Diabetes mellitus
     Dosage: UNK UNK, QD

REACTIONS (12)
  - Spinal cord compression [Unknown]
  - Pain [Unknown]
  - Limb injury [Unknown]
  - Fall [Unknown]
  - Thyroid neoplasm [Unknown]
  - Hip arthroplasty [Unknown]
  - Movement disorder [Unknown]
  - Fear [Unknown]
  - Dysphonia [Unknown]
  - Visual impairment [Unknown]
  - Spinal operation [Unknown]
  - Device issue [Unknown]

NARRATIVE: CASE EVENT DATE: 20210812
